FAERS Safety Report 11101557 (Version 1)
Quarter: 2015Q2

REPORT INFORMATION
  Report Type: Spontaneous
  Country: IT (occurrence: IT)
  Receive Date: 20150508
  Receipt Date: 20150508
  Transmission Date: 20150821
  Serious: Yes (Other)
  Sender: FDA-Public Use
  Company Number: IT-PFIZER INC-2015126754

PATIENT
  Age: 44 Year
  Sex: Male

DRUGS (15)
  1. BUPIVACAINE [Concomitant]
     Active Substance: BUPIVACAINE
     Indication: CERVICOBRACHIAL SYNDROME
     Dosage: 3 ML, UNK
     Dates: start: 20140604, end: 20140604
  2. TRIAMCINOLONE [Concomitant]
     Active Substance: TRIAMCINOLONE
     Dosage: 80 UNK, UNK
     Dates: start: 20150326, end: 20150326
  3. OXYCONTIN [Concomitant]
     Active Substance: OXYCODONE HYDROCHLORIDE
     Indication: CERVICOBRACHIAL SYNDROME
     Dosage: 5 MG, 2X/DAY
  4. LYRICA [Suspect]
     Active Substance: PREGABALIN
     Indication: CERVICOBRACHIAL SYNDROME
     Dosage: 75 MG, 2X/DAY
     Dates: start: 201406, end: 201410
  5. BUPIVACAINE [Concomitant]
     Active Substance: BUPIVACAINE
     Dosage: 50 MG, UNK
     Dates: start: 20140819, end: 20140819
  6. PATROL [Concomitant]
     Active Substance: ACETAMINOPHEN\TRAMADOL HYDROCHLORIDE
     Indication: CERVICOBRACHIAL SYNDROME
     Dosage: 37,5/325 MG 1 TABLET EVRY 8 HOURS
     Dates: start: 201408
  7. NAPROXEN SODIUM. [Concomitant]
     Active Substance: NAPROXEN SODIUM
     Indication: CERVICOBRACHIAL SYNDROME
     Dosage: 550 MG, AS NEEDED 1 TABLET / DAY
  8. TRIAMCINOLONE [Concomitant]
     Active Substance: TRIAMCINOLONE
     Indication: CERVICOBRACHIAL SYNDROME
     Dosage: 80 MG, UNK
     Dates: start: 20140604, end: 20140604
  9. TRIAMCINOLONE [Concomitant]
     Active Substance: TRIAMCINOLONE
     Dosage: 80 UNK, UNK
     Dates: start: 20141013, end: 20141013
  10. LYRICA [Suspect]
     Active Substance: PREGABALIN
     Indication: SCIATICA
     Dosage: UNK
     Dates: start: 201503, end: 201503
  11. BUPIVACAINE [Concomitant]
     Active Substance: BUPIVACAINE
     Dosage: 3 ML, UNK
     Dates: start: 20141013, end: 20141013
  12. BUPIVACAINE [Concomitant]
     Active Substance: BUPIVACAINE
     Dosage: 3 ML, UNK
     Dates: start: 20150326, end: 20150326
  13. TRIAMCINOLONE [Concomitant]
     Active Substance: TRIAMCINOLONE
     Dosage: 80 MG IN 10 ML
     Dates: start: 20140917, end: 20140917
  14. BUPIVACAINE [Concomitant]
     Active Substance: BUPIVACAINE
     Dosage: 50 MG, UNK
     Dates: start: 20140917, end: 20140917
  15. TRIAMCINOLONE [Concomitant]
     Active Substance: TRIAMCINOLONE
     Dosage: UNK
     Dates: start: 20140819, end: 20140819

REACTIONS (9)
  - Irritability [Not Recovered/Not Resolved]
  - Chest pain [Unknown]
  - Pain [Not Recovered/Not Resolved]
  - Drug resistance [Not Recovered/Not Resolved]
  - Alanine aminotransferase increased [Unknown]
  - Drug ineffective [Unknown]
  - Epicondylitis [Unknown]
  - Sacroiliitis [Not Recovered/Not Resolved]
  - Sensitivity of teeth [Not Recovered/Not Resolved]

NARRATIVE: CASE EVENT DATE: 2014
